FAERS Safety Report 5741103-9 (Version None)
Quarter: 2008Q2

REPORT INFORMATION
  Report Type: 
  Country: None (occurrence: None)
  Receive Date: 20080516
  Receipt Date: 20080507
  Transmission Date: 20081010
  Serious: Yes (Other)
  Sender: FDA-Public Use
  Company Number: US-PFIZER INC-2008040076

PATIENT
  Sex: Male
  Weight: 72.6 kg

DRUGS (4)
  1. LIPITOR [Suspect]
     Indication: BLOOD CHOLESTEROL INCREASED
  2. PRAVASTATIN [Suspect]
     Indication: BLOOD CHOLESTEROL INCREASED
     Dates: start: 20080101, end: 20080401
  3. ACETYLSALICYLIC ACID SRT [Concomitant]
  4. TETRACYCLINE [Concomitant]
     Indication: BACTERIAL INFECTION

REACTIONS (2)
  - INSOMNIA [None]
  - SEBACEOUS GLAND DISORDER [None]
